FAERS Safety Report 5200237-8 (Version None)
Quarter: 2007Q1

REPORT INFORMATION
  Report Type: 
  Country: None (occurrence: None)
  Receive Date: 20070105
  Receipt Date: 20061227
  Transmission Date: 20070707
  Serious: Yes (Hospitalization, Other)
  Sender: FDA-Public Use
  Company Number: US-PFIZER INC-2006065671

PATIENT
  Sex: Female
  Weight: 104.3 kg

DRUGS (6)
  1. BEXTRA [Suspect]
     Indication: ARTHRITIS
     Route: 048
  2. CELEBREX [Concomitant]
  3. VIOXX [Concomitant]
  4. DARVOCET [Concomitant]
  5. MOBIC [Concomitant]
  6. TYLENOL [Concomitant]

REACTIONS (3)
  - CEREBROVASCULAR ACCIDENT [None]
  - DEAFNESS UNILATERAL [None]
  - MYOCARDIAL INFARCTION [None]
